FAERS Safety Report 22860219 (Version 9)
Quarter: 2025Q4

REPORT INFORMATION
  Report Type: Other
  Country: CA (occurrence: CA)
  Receive Date: 20230824
  Receipt Date: 20251020
  Transmission Date: 20260117
  Serious: Yes (Death, Hospitalization, Other)
  Sender: GLENMARK
  Company Number: CA-GLENMARK PHARMACEUTICALS-2023GMK084450

PATIENT
  Age: 50 Year
  Sex: Female
  Weight: 80 kg

DRUGS (47)
  1. URSODIOL [Suspect]
     Active Substance: URSODIOL
     Indication: Product used for unknown indication
     Dosage: 25 MILLIGRAM, 3 EVERY 1 DAYS
     Route: 048
  2. TEDUGLUTIDE [Suspect]
     Active Substance: TEDUGLUTIDE
     Indication: Short-bowel syndrome
     Dosage: 4 MILLIGRAM, 1 EVERY 1 DAYS
     Route: 050
  3. TEDUGLUTIDE [Suspect]
     Active Substance: TEDUGLUTIDE
     Dosage: 3.6 MILLIGRAM, 1 EVERY 1 DAYS
     Route: 050
  4. TEDUGLUTIDE [Suspect]
     Active Substance: TEDUGLUTIDE
     Dosage: 0.36 MILLIGRAM, 1 EVERY 2 DAYS
     Route: 050
  5. TEDUGLUTIDE [Suspect]
     Active Substance: TEDUGLUTIDE
     Dosage: 3.6 MILLIGRAM, 1 EVERY 2 DAYS
     Route: 050
  6. TEDUGLUTIDE [Suspect]
     Active Substance: TEDUGLUTIDE
     Dosage: 3.6 MILLIGRAM
     Route: 050
  7. TEDUGLUTIDE [Suspect]
     Active Substance: TEDUGLUTIDE
     Dosage: UNK, 2 EVERY 1 DAYS
     Route: 050
  8. TEDUGLUTIDE [Suspect]
     Active Substance: TEDUGLUTIDE
     Dosage: 3.9 MILLIGRAM, 1 EVERY 1 DAYS
     Route: 050
  9. TEDUGLUTIDE [Suspect]
     Active Substance: TEDUGLUTIDE
     Dosage: 3.6 MILLIGRAM, 1 EVERY 2 DAYS
     Route: 050
  10. TEDUGLUTIDE [Suspect]
     Active Substance: TEDUGLUTIDE
     Dosage: UNK, 1 EVERY 2 DAYS
     Route: 050
  11. TEDUGLUTIDE [Suspect]
     Active Substance: TEDUGLUTIDE
     Dosage: 3.9 MILLIGRAM, 1 EVERY 1 DAYS
     Route: 050
  12. TEDUGLUTIDE [Suspect]
     Active Substance: TEDUGLUTIDE
     Dosage: 3.6 MILLIGRAM, 1 EVERY 1 DAYS
     Route: 058
  13. TEDUGLUTIDE [Suspect]
     Active Substance: TEDUGLUTIDE
     Dosage: 3.68 MILLIGRAM, 1 EVERY 2 DAYS
     Route: 058
  14. TEDUGLUTIDE [Suspect]
     Active Substance: TEDUGLUTIDE
     Dosage: 3.6 MILLIGRAM, 1 EVERY 2 DAYS
     Route: 058
  15. TEDUGLUTIDE [Suspect]
     Active Substance: TEDUGLUTIDE
     Dosage: 3.6 MILLIGRAM, 1 EVERY 1 DAYS
     Route: 058
  16. TEDUGLUTIDE [Suspect]
     Active Substance: TEDUGLUTIDE
     Indication: Short-bowel syndrome
     Dosage: 3.6 MILLIGRAM, 1 EVERY 1 DAYS
     Route: 050
  17. ASPIRIN [Concomitant]
     Active Substance: ASPIRIN
     Indication: Product used for unknown indication
     Dosage: 81 MILLIGRAM, 1 EVERY 1 DAYS
     Route: 065
  18. ASPIRIN [Concomitant]
     Active Substance: ASPIRIN
     Indication: Product used for unknown indication
     Dosage: 81 MILLIGRAM, 1 EVERY 1 DAYS
     Route: 065
  19. ASPIRIN [Concomitant]
     Active Substance: ASPIRIN
     Dosage: 81 MILLIGRAM, 1 EVERY 1 DAYS
     Route: 065
  20. CODEINE [Concomitant]
     Active Substance: CODEINE
     Indication: Product used for unknown indication
     Dosage: 18 MILLIGRAM
     Route: 065
  21. CODEINE [Concomitant]
     Active Substance: CODEINE
     Dosage: 12 MILLIGRAM, 1 EVERY 4 HOURS
     Route: 065
  22. CODEINE [Concomitant]
     Active Substance: CODEINE
     Dosage: 12 MILLILITER, 1 EVERY 4 HOURS
     Route: 065
  23. CODEINE [Concomitant]
     Active Substance: CODEINE
     Dosage: 18 MILLILITER
     Route: 065
  24. CODEINE [Concomitant]
     Active Substance: CODEINE
     Dosage: 12 MILLILITER,  1 EVERY 4 HOURS
     Route: 065
  25. FRAGMIN [Concomitant]
     Active Substance: DALTEPARIN SODIUM
     Indication: Product used for unknown indication
     Dosage: 1800 INTERNATIONAL UNIT, 1 EVERY 2 DAYS
     Route: 058
  26. FRAGMIN [Concomitant]
     Active Substance: DALTEPARIN SODIUM
     Indication: Product used for unknown indication
     Dosage: 1800 INTERNATIONAL UNIT, 1 EVERY 2 DAYS, SOLUTION INTRAVENOUS
     Route: 058
  27. LANSOPRAZOLE [Concomitant]
     Active Substance: LANSOPRAZOLE
     Indication: Product used for unknown indication
     Dosage: 8 MILLILITER,  2 EVERY 1 DAYS
     Route: 048
  28. LOSEC [Concomitant]
     Active Substance: OMEPRAZOLE
     Indication: Product used for unknown indication
     Dosage: UNK
     Route: 065
  29. NIACINAMIDE\PYRIDOXINE HYDROCHLORIDE\TYROSINE [Concomitant]
     Active Substance: NIACINAMIDE\PYRIDOXINE HYDROCHLORIDE\TYROSINE
     Indication: Product used for unknown indication
     Dosage: 1000 MILLILITER
     Route: 065
  30. NIACINAMIDE\PYRIDOXINE HYDROCHLORIDE\TYROSINE [Concomitant]
     Active Substance: NIACINAMIDE\PYRIDOXINE HYDROCHLORIDE\TYROSINE
     Dosage: 2 INTERNATIONAL UNIT
     Route: 065
  31. NIACINAMIDE\PYRIDOXINE HYDROCHLORIDE\TYROSINE [Concomitant]
     Active Substance: NIACINAMIDE\PYRIDOXINE HYDROCHLORIDE\TYROSINE
     Dosage: 3400 MILLILITER
     Route: 065
  32. NIACINAMIDE\PYRIDOXINE HYDROCHLORIDE\TYROSINE [Concomitant]
     Active Substance: NIACINAMIDE\PYRIDOXINE HYDROCHLORIDE\TYROSINE
     Dosage: 3500 MILLILITER, 3 EVERY 1 WEEK
     Route: 065
  33. NIACINAMIDE\PYRIDOXINE HYDROCHLORIDE\TYROSINE [Concomitant]
     Active Substance: NIACINAMIDE\PYRIDOXINE HYDROCHLORIDE\TYROSINE
     Dosage: 3500 MILLILITER, 1 EVERY 1 DAY
     Route: 065
  34. NIACINAMIDE\PYRIDOXINE HYDROCHLORIDE\TYROSINE [Concomitant]
     Active Substance: NIACINAMIDE\PYRIDOXINE HYDROCHLORIDE\TYROSINE
     Dosage: 3400 MILLILITER, 4 EVERY 1 WEEKS
     Route: 065
  35. NIACINAMIDE\PYRIDOXINE HYDROCHLORIDE\TYROSINE [Concomitant]
     Active Substance: NIACINAMIDE\PYRIDOXINE HYDROCHLORIDE\TYROSINE
     Dosage: 3500 MILLILITER
     Route: 065
  36. NIACINAMIDE\PYRIDOXINE HYDROCHLORIDE\TYROSINE [Concomitant]
     Active Substance: NIACINAMIDE\PYRIDOXINE HYDROCHLORIDE\TYROSINE
     Dosage: 3500 MILLILITER
     Route: 065
  37. NIACINAMIDE\PYRIDOXINE HYDROCHLORIDE\TYROSINE [Concomitant]
     Active Substance: NIACINAMIDE\PYRIDOXINE HYDROCHLORIDE\TYROSINE
     Dosage: UNK, 1 EVERY 1 DAYS
     Route: 065
  38. NIACINAMIDE\PYRIDOXINE HYDROCHLORIDE\TYROSINE [Concomitant]
     Active Substance: NIACINAMIDE\PYRIDOXINE HYDROCHLORIDE\TYROSINE
     Dosage: 3500 MILLILITER
     Route: 065
  39. PREVACID [Concomitant]
     Active Substance: LANSOPRAZOLE
     Indication: Product used for unknown indication
     Dosage: 30 MILLIGRAM, 3 EVERY 1 DAYS
     Route: 060
  40. RIVAROXABAN [Concomitant]
     Active Substance: RIVAROXABAN
     Indication: Product used for unknown indication
     Dosage: UNK
     Route: 065
  41. TINZAPARIN [Concomitant]
     Active Substance: TINZAPARIN
     Indication: Product used for unknown indication
     Dosage: 14000 INTERNATIONAL UNIT, 1 EVERY 1 DAY
     Route: 058
  42. VITAMIN D3 [Concomitant]
     Active Substance: CHOLECALCIFEROL
     Indication: Product used for unknown indication
     Dosage: UNK
     Route: 065
  43. VITAMIN D3 [Concomitant]
     Active Substance: CHOLECALCIFEROL
     Dosage: UNK
     Route: 065
  44. XARELTO [Concomitant]
     Active Substance: RIVAROXABAN
     Indication: Product used for unknown indication
     Dosage: 20 MILLIGRAM, 1 EVERY 2 DAYS
     Route: 065
  45. VITAMIN D NOS [Concomitant]
     Active Substance: CHOLECALCIFEROL\ERGOCALCIFEROL
     Indication: Product used for unknown indication
     Dosage: UNK
     Route: 065
  46. INSULIN NOS [Concomitant]
     Active Substance: INSULIN NOS
     Indication: Product used for unknown indication
     Dosage: UNK
     Route: 048
  47. RIVAROXABAN [Concomitant]
     Active Substance: RIVAROXABAN
     Indication: Product used for unknown indication
     Dosage: UNK
     Route: 065

REACTIONS (40)
  - Death [Fatal]
  - Bile duct stone [Fatal]
  - Arthralgia [Fatal]
  - Loss of consciousness [Fatal]
  - Illness [Fatal]
  - Breast engorgement [Fatal]
  - Ear pain [Fatal]
  - Muscular weakness [Fatal]
  - Gait inability [Fatal]
  - Candida sepsis [Fatal]
  - Haematochezia [Fatal]
  - Muscle strain [Fatal]
  - Pancreatitis [Fatal]
  - Poor quality sleep [Fatal]
  - Panic attack [Fatal]
  - Poor venous access [Fatal]
  - Speech disorder [Fatal]
  - Dehydration [Fatal]
  - Bacteraemia [Fatal]
  - Skin lesion [Fatal]
  - Gastrointestinal stoma output increased [Fatal]
  - Faecal volume decreased [Fatal]
  - Neuropathy peripheral [Fatal]
  - Pain [Fatal]
  - Weight decreased [Fatal]
  - Weight increased [Fatal]
  - Back pain [Fatal]
  - Abdominal discomfort [Fatal]
  - Abdominal pain [Fatal]
  - Drug hypersensitivity [Fatal]
  - Malaise [Fatal]
  - Decreased appetite [Fatal]
  - Pyrexia [Fatal]
  - Medical device site infection [Fatal]
  - Post procedural complication [Fatal]
  - Vascular device infection [Fatal]
  - Breast cancer [Fatal]
  - Breast cancer recurrent [Fatal]
  - Intentional product use issue [Fatal]
  - Constipation [Not Recovered/Not Resolved]
